FAERS Safety Report 5835641-8 (Version None)
Quarter: 2008Q3

REPORT INFORMATION
  Report Type: 
  Country: None (occurrence: None)
  Receive Date: 20080806
  Receipt Date: 20080805
  Transmission Date: 20090109
  Serious: Yes (Life-Threatening, Hospitalization, Other)
  Sender: FDA-Public Use
  Company Number: FR-BRISTOL-MYERS SQUIBB COMPANY-14290142

PATIENT
  Age: 63 Year
  Sex: Female

DRUGS (4)
  1. DASATINIB [Suspect]
  2. ARANESP [Suspect]
     Indication: ANAEMIA OF MALIGNANT DISEASE
     Route: 058
     Dates: start: 20050701, end: 20070521
  3. DEXAMETHASONE [Concomitant]
     Route: 048
  4. NEOMYCIN SULFATE TAB [Concomitant]
     Route: 048

REACTIONS (3)
  - MONOPLEGIA [None]
  - PARESIS [None]
  - REVERSIBLE POSTERIOR LEUKOENCEPHALOPATHY SYNDROME [None]
